FAERS Safety Report 7085294-9 (Version None)
Quarter: 2010Q4

REPORT INFORMATION
  Report Type: 
  Country: None (occurrence: None)
  Receive Date: 20101105
  Receipt Date: 20101029
  Transmission Date: 20110411
  Serious: Yes (Other)
  Sender: FDA-Public Use
  Company Number: JP-PFIZER INC-2010123367

PATIENT
  Age: 14 Year
  Sex: Female

DRUGS (3)
  1. AZULFIDINE [Suspect]
     Indication: RHEUMATOID ARTHRITIS
     Dosage: 500 MG, 1X/DAY
     Route: 048
     Dates: start: 20060726, end: 20060809
  2. AZULFIDINE [Suspect]
     Dosage: 500 MG, 2X/DAY
     Route: 048
     Dates: start: 20060810, end: 20060907
  3. AZULFIDINE [Suspect]
     Dosage: 500 MG, 1X/DAY
     Route: 048
     Dates: start: 20060908, end: 20061005

REACTIONS (2)
  - ARTHRALGIA [None]
  - STOMATITIS [None]
